FAERS Safety Report 16754707 (Version 1)
Quarter: 2019Q4

REPORT INFORMATION
  Report Type: Spontaneous
  Country: US (occurrence: US)
  Receive Date: 20190828
  Receipt Date: 20190828
  Transmission Date: 20200122
  Serious: Yes (Hospitalization)
  Sender: FDA-Public Use
  Company Number: None

PATIENT
  Sex: Female

DRUGS (16)
  1. CARAFATE [Concomitant]
     Active Substance: SUCRALFATE
  2. AFREZZA [Concomitant]
     Active Substance: INSULIN HUMAN
  3. ALDACTONE [Concomitant]
     Active Substance: SPIRONOLACTONE
  4. HUMALOG JR [Concomitant]
  5. LIPITOR [Concomitant]
     Active Substance: ATORVASTATIN CALCIUM
  6. MAG-200 [Concomitant]
  7. POT CHLORIDE [Concomitant]
     Active Substance: POTASSIUM CHLORIDE
  8. EFFEXOR [Concomitant]
     Active Substance: VENLAFAXINE HYDROCHLORIDE
  9. INSPRA [Concomitant]
     Active Substance: EPLERENONE
  10. ASPIRIN. [Concomitant]
     Active Substance: ASPIRIN
  11. HUMIRA [Suspect]
     Active Substance: ADALIMUMAB
     Indication: HYPOGAMMAGLOBULINAEMIA
     Dosage: ?          OTHER FREQUENCY:Q2WKS;??
     Route: 058
     Dates: start: 20190129
  12. AMLODIPINE [Concomitant]
     Active Substance: AMLODIPINE BESYLATE
  13. LORAZEPAM. [Concomitant]
     Active Substance: LORAZEPAM
  14. TRESIBA FLEX [Concomitant]
  15. CYPROHEPTAD [Concomitant]
  16. HYDROCHLOROT [Concomitant]
     Active Substance: HYDROCHLOROTHIAZIDE

REACTIONS (2)
  - Unevaluable event [None]
  - Ketoacidosis [None]
